FAERS Safety Report 5393303-8 (Version None)
Quarter: 2007Q3

REPORT INFORMATION
  Report Type: 
  Country: None (occurrence: None)
  Receive Date: 20070719
  Receipt Date: 20070719
  Transmission Date: 20080115
  Serious: No
  Sender: FDA-Public Use
  Company Number: None

PATIENT
  Sex: Female
  Weight: 115.2136 kg

DRUGS (3)
  1. NIX [Suspect]
     Dates: start: 20070626, end: 20070719
  2. RID MOUSSE [Suspect]
     Dates: start: 20070626, end: 20070719
  3. KWELL [Suspect]
     Dates: start: 20070626, end: 20070719

REACTIONS (1)
  - ALOPECIA [None]
